FAERS Safety Report 12893055 (Version 2)
Quarter: 2017Q1

REPORT INFORMATION
  Report Type: Report from Study
  Country: CO (occurrence: CO)
  Receive Date: 20161028
  Receipt Date: 20170118
  Transmission Date: 20170428
  Serious: Yes (Other)
  Sender: FDA-Public Use
  Company Number: PHHY2016CO148339

PATIENT
  Sex: Female
  Weight: 73 kg

DRUGS (1)
  1. SIGNIFOR [Suspect]
     Active Substance: PASIREOTIDE
     Indication: CUSHING^S SYNDROME
     Dosage: 0.9 MG, BID
     Route: 058
     Dates: start: 20140323

REACTIONS (4)
  - Faeces discoloured [Unknown]
  - Abdominal discomfort [Unknown]
  - Nausea [Unknown]
  - Haematochezia [Unknown]
